FAERS Safety Report 5895658-4 (Version None)
Quarter: 2008Q3

REPORT INFORMATION
  Report Type: 
  Country: None (occurrence: None)
  Receive Date: 20080924
  Receipt Date: 20001204
  Transmission Date: 20090109
  Serious: No
  Sender: FDA-Public Use
  Company Number: US-BAYER-200002646BWH

PATIENT
  Age: 30 Year
  Sex: Male

DRUGS (2)
  1. CIPRO [Suspect]
     Indication: SINUSITIS
     Dosage: UNIT DOSE: 500 MG
     Route: 048
     Dates: start: 20000401
  2. CLARITIN [Concomitant]
     Route: 065

REACTIONS (1)
  - ANOSMIA [None]
